FAERS Safety Report 4929129-6 (Version None)
Quarter: 2006Q1

REPORT INFORMATION
  Report Type: 
  Country: None (occurrence: None)
  Receive Date: 20060228
  Receipt Date: 20060228
  Transmission Date: 20060701
  Serious: No
  Sender: FDA-Public Use
  Company Number: None

PATIENT
  Age: 55 Year
  Sex: Male
  Weight: 102.0593 kg

DRUGS (1)
  1. LEVAQUIN [Suspect]
     Indication: TOOTH ABSCESS
     Dosage: 750MG 1 TIMES DAILY PO
     Route: 048
     Dates: start: 20060115, end: 20060205

REACTIONS (2)
  - TENDON DISORDER [None]
  - TENDON RUPTURE [None]
